FAERS Safety Report 9380970 (Version 2)
Quarter: 2013Q4

REPORT INFORMATION
  Report Type: Report from Study
  Country: FR (occurrence: FR)
  Receive Date: 20130703
  Receipt Date: 20131125
  Transmission Date: 20140711
  Serious: Yes (Hospitalization, Other)
  Sender: FDA-Public Use
  Company Number: FR-ROCHE-1239302

PATIENT
  Age: 77 Year
  Sex: Male
  Weight: 93 kg

DRUGS (4)
  1. RITUXIMAB [Suspect]
     Indication: MALIGNANT LYMPHOID NEOPLASM
     Route: 065
     Dates: start: 20130220, end: 20130425
  2. BORTEZOMIB [Suspect]
     Indication: MALIGNANT LYMPHOID NEOPLASM
     Dosage: LAST DOSE PRIOR TO SAE: 25/APR/2013
     Route: 065
     Dates: start: 20130220
  3. HIGH DOSE ARA-C [Suspect]
     Indication: MALIGNANT LYMPHOID NEOPLASM
     Route: 065
     Dates: start: 20130220, end: 20130427
  4. DEXAMETHASONE [Suspect]
     Indication: MALIGNANT LYMPHOID NEOPLASM
     Route: 065
     Dates: start: 20130220, end: 20130428

REACTIONS (2)
  - Staphylococcal infection [Recovered/Resolved]
  - Subclavian vein thrombosis [Not Recovered/Not Resolved]
